FAERS Safety Report 11276240 (Version 1)
Quarter: 2015Q3

REPORT INFORMATION
  Report Type: Spontaneous
  Country: US (occurrence: None)
  Receive Date: 20150715
  Receipt Date: 20150715
  Transmission Date: 20151125
  Serious: Yes (Other)
  Sender: FDA-Public Use
  Company Number: None

PATIENT
  Age: 90 Year
  Sex: Male
  Weight: 63.5 kg

DRUGS (23)
  1. AVASTIN [Suspect]
     Active Substance: BEVACIZUMAB
     Indication: AGE-RELATED MACULAR DEGENERATION
     Dosage: INJECTION IN EYES
     Dates: start: 20120302
  2. ATENOLOL. [Concomitant]
     Active Substance: ATENOLOL
  3. TRAZODONE [Concomitant]
     Active Substance: TRAZODONE HYDROCHLORIDE
  4. OFLOXACIN. [Concomitant]
     Active Substance: OFLOXACIN
  5. VITAMIN B COMPLEX [Concomitant]
     Active Substance: CYANOCOBALAMIN\DEXPANTHENOL\NIACINAMIDE\PYRIDOXINE HYDROCHLORIDE\RIBOFLAVIN 5^-PHOSPHATE SODIUM\THIAMINE HYDROCHLORIDE\VITAMIN B COMPLEX
  6. OMEGA-3 ACIDS [Concomitant]
     Active Substance: OMEGA-3 FATTY ACIDS
  7. SPIRONOLACT [Concomitant]
  8. VITAMIN B12 [Concomitant]
     Active Substance: CYANOCOBALAMIN
  9. WARFARIN [Concomitant]
     Active Substance: WARFARIN
  10. LOSARTAN. [Concomitant]
     Active Substance: LOSARTAN
  11. DIGOXIN. [Concomitant]
     Active Substance: DIGOXIN
  12. VITAMIN D3 [Concomitant]
     Active Substance: CHOLECALCIFEROL
  13. SIMVASTATIN. [Concomitant]
     Active Substance: SIMVASTATIN
  14. ASPIRIN. [Concomitant]
     Active Substance: ASPIRIN
  15. FUROSEMIDE. [Concomitant]
     Active Substance: FUROSEMIDE
  16. FOLIC ACID. [Concomitant]
     Active Substance: FOLIC ACID
  17. PREDNISOLONE. [Concomitant]
     Active Substance: PREDNISOLONE
  18. PRESERVISION [Concomitant]
     Active Substance: MINERALS\VITAMINS
  19. MULTIVITAMIN [Concomitant]
     Active Substance: VITAMINS
  20. CALCIUM [Concomitant]
     Active Substance: CALCIUM
  21. ALPRAZOLAM. [Concomitant]
     Active Substance: ALPRAZOLAM
  22. MAGNESIUM OXIDE. [Concomitant]
     Active Substance: MAGNESIUM OXIDE
  23. BIOTIN [Concomitant]
     Active Substance: BIOTIN

REACTIONS (5)
  - Eye infection [None]
  - Eye haemorrhage [None]
  - Suspected transmission of an infectious agent via product [None]
  - Inadequate aseptic technique in use of product [None]
  - Blindness unilateral [None]

NARRATIVE: CASE EVENT DATE: 20150227
